FAERS Safety Report 4475352-7 (Version None)
Quarter: 2004Q4

REPORT INFORMATION
  Report Type: 
  Country: None (occurrence: None)
  Receive Date: 20041015
  Receipt Date: 20041005
  Transmission Date: 20050328
  Serious: Yes (Hospitalization)
  Sender: FDA-Public Use
  Company Number: US-ABBOTT-04P-163-0276154-00

PATIENT
  Age: 70 Year
  Sex: Male

DRUGS (2)
  1. TRICOR [Suspect]
     Indication: BLOOD TRIGLYCERIDES INCREASED
     Route: 048
     Dates: start: 20040901
  2. CARVEDILOL [Concomitant]
     Indication: DIURETIC THERAPY
     Route: 065

REACTIONS (1)
  - PANCREATITIS [None]
